FAERS Safety Report 7651351-9 (Version None)
Quarter: 2011Q3

REPORT INFORMATION
  Report Type: 
  Country: None (occurrence: None)
  Receive Date: 20110802
  Receipt Date: 20110720
  Transmission Date: 20111222
  Serious: Yes (Other)
  Sender: FDA-Public Use
  Company Number: PHHY2011JP65917

PATIENT
  Age: 61 Year
  Sex: Female

DRUGS (2)
  1. TEGRETOL [Suspect]
     Dosage: 200 MG, UNK
     Route: 048
  2. TEGRETOL [Suspect]
     Dosage: 100 MG
     Route: 048
     Dates: start: 20000501

REACTIONS (2)
  - CARDIAC DISORDER [None]
  - SINUS DISORDER [None]
